FAERS Safety Report 21856612 (Version 1)
Quarter: 2023Q1

REPORT INFORMATION
  Report Type: Report from Study
  Country: US (occurrence: US)
  Receive Date: 20230112
  Receipt Date: 20230112
  Transmission Date: 20230418
  Serious: Yes (Death, Other)
  Sender: FDA-Public Use
  Company Number: US-ACADIA PHARMACEUTICALS INC.-ACA-2023-PIM-000048

PATIENT
  Sex: Male

DRUGS (9)
  1. NUPLAZID [Suspect]
     Active Substance: PIMAVANSERIN TARTRATE
     Indication: Parkinson^s disease
     Dosage: 34 MILLIGRAM, QD
     Route: 048
  2. LISINOPRIL [Concomitant]
     Active Substance: LISINOPRIL
  3. AMANTADINE [Concomitant]
     Active Substance: AMANTADINE
  4. BACLOFEN [Concomitant]
     Active Substance: BACLOFEN
  5. LORAZEPAM [Concomitant]
     Active Substance: LORAZEPAM
  6. LEVOCETIRIZINE DIHYDROCHLORIDE [Concomitant]
     Active Substance: LEVOCETIRIZINE DIHYDROCHLORIDE
  7. CHLORTHALIDONE [Concomitant]
     Active Substance: CHLORTHALIDONE
  8. RIVASTIGMINE [Concomitant]
     Active Substance: RIVASTIGMINE
  9. ATENOLOL [Concomitant]
     Active Substance: ATENOLOL

REACTIONS (1)
  - Death [Fatal]
